FAERS Safety Report 5651052-2 (Version None)
Quarter: 2008Q1

REPORT INFORMATION
  Report Type: 
  Country: None (occurrence: None)
  Receive Date: 20080305
  Receipt Date: 20080304
  Transmission Date: 20080703
  Serious: Yes (Other)
  Sender: FDA-Public Use
  Company Number: B0497947A

PATIENT
  Age: 35 Year
  Sex: Male
  Weight: 85 kg

DRUGS (7)
  1. PAXIL [Suspect]
     Indication: DEPRESSION
     Dosage: 50MG PER DAY
     Route: 048
     Dates: start: 20020101
  2. TOLEDOMIN [Suspect]
     Indication: DEPRESSION
     Route: 048
     Dates: start: 20071127, end: 20080122
  3. MEILAX [Concomitant]
     Indication: PANIC DISORDER
     Route: 048
     Dates: end: 20071224
  4. ANAFRANIL [Concomitant]
     Indication: DEPRESSION
     Dosage: 40MG PER DAY
     Route: 048
     Dates: start: 20070821, end: 20071126
  5. TETRAMIDE [Concomitant]
     Indication: DEPRESSION
     Dosage: 15MG PER DAY
     Route: 048
     Dates: end: 20071203
  6. EPADEL S [Concomitant]
     Indication: HYPERLIPIDAEMIA
     Route: 048
     Dates: start: 20071120
  7. WYPAX [Concomitant]
     Indication: PANIC DISORDER
     Route: 048
     Dates: start: 20071211

REACTIONS (6)
  - BLOOD CHOLESTEROL INCREASED [None]
  - BLOOD TRIGLYCERIDES INCREASED [None]
  - HEPATIC STEATOSIS [None]
  - HYPERLIPIDAEMIA [None]
  - SOMNOLENCE [None]
  - URINARY RETENTION [None]
